FAERS Safety Report 6216486-6 (Version None)
Quarter: 2009Q2

REPORT INFORMATION
  Report Type: 
  Country: None (occurrence: None)
  Receive Date: 20090605
  Receipt Date: 20090529
  Transmission Date: 20091009
  Serious: Yes (Hospitalization, Other)
  Sender: FDA-Public Use
  Company Number: US-MERCK-0703USA03250

PATIENT
  Age: 59 Year
  Sex: Female
  Weight: 63 kg

DRUGS (5)
  1. FOSAMAX [Suspect]
     Indication: OSTEOPENIA
     Route: 048
     Dates: start: 19990803, end: 20010402
  2. FOSAMAX [Suspect]
     Route: 048
     Dates: start: 20010401, end: 20060516
  3. FOSAMAX [Suspect]
     Indication: OSTEOPOROSIS
     Route: 048
     Dates: start: 19990803, end: 20010402
  4. FOSAMAX [Suspect]
     Route: 048
     Dates: start: 20010401, end: 20060516
  5. PREMARIN [Concomitant]
     Route: 065
     Dates: start: 19850101

REACTIONS (29)
  - ABDOMINAL DISCOMFORT [None]
  - ABDOMINAL WALL DISORDER [None]
  - ANAEMIA [None]
  - ANTINUCLEAR ANTIBODY POSITIVE [None]
  - ANXIETY [None]
  - ARTHROPATHY [None]
  - BACK PAIN [None]
  - BLOOD CHOLESTEROL INCREASED [None]
  - CATARACT [None]
  - CHEST DISCOMFORT [None]
  - DEPRESSION [None]
  - DISCOMFORT [None]
  - EMOTIONAL DISTRESS [None]
  - GASTROOESOPHAGEAL REFLUX DISEASE [None]
  - HYPERLIPIDAEMIA [None]
  - IMMUNODEFICIENCY [None]
  - KYPHOSIS [None]
  - LENTIGO [None]
  - NECK PAIN [None]
  - OSTEOMYELITIS [None]
  - OSTEONECROSIS [None]
  - PULPITIS DENTAL [None]
  - RED BLOOD CELL SEDIMENTATION RATE INCREASED [None]
  - RETINAL TEAR [None]
  - SCAR [None]
  - TELANGIECTASIA [None]
  - URTICARIA [None]
  - VERTIGO [None]
  - VULVOVAGINAL DISCOMFORT [None]
